FAERS Safety Report 6638481-5 (Version None)
Quarter: 2010Q1

REPORT INFORMATION
  Report Type: 
  Country: None (occurrence: None)
  Receive Date: 20100317
  Receipt Date: 20100311
  Transmission Date: 20100710
  Serious: Yes (Other)
  Sender: FDA-Public Use
  Company Number: CA-MERCK-1003USA01752

PATIENT
  Age: 58 Year
  Sex: Male

DRUGS (12)
  1. ZETIA [Suspect]
     Route: 048
  2. ANDRIOL [Concomitant]
     Route: 065
  3. ASPIRIN [Concomitant]
     Route: 065
  4. CRESTOR [Suspect]
     Route: 048
  5. DESIPRAMINE HYDROCHLORIDE [Concomitant]
     Route: 065
  6. DOMPERIDONE [Concomitant]
     Route: 065
  7. METOPROLOL [Concomitant]
     Route: 065
  8. MICARDIS [Concomitant]
     Route: 065
  9. NEXIUM [Concomitant]
     Route: 065
  10. PANTOPRAZOLE [Concomitant]
     Route: 065
  11. SERTRALINE HYDROCHLORIDE [Concomitant]
     Route: 065
  12. ZANTAC [Concomitant]
     Route: 065

REACTIONS (22)
  - ALANINE AMINOTRANSFERASE INCREASED [None]
  - ASPARTATE AMINOTRANSFERASE INCREASED [None]
  - BLOOD ALBUMIN DECREASED [None]
  - BLOOD ALKALINE PHOSPHATASE INCREASED [None]
  - BLOOD BILIRUBIN INCREASED [None]
  - BLOOD CREATININE INCREASED [None]
  - CHROMATURIA [None]
  - DRUG INTERACTION [None]
  - EPIGASTRIC DISCOMFORT [None]
  - EXCORIATION [None]
  - FAECES PALE [None]
  - GALLBLADDER DISORDER [None]
  - GAMMA-GLUTAMYLTRANSFERASE INCREASED [None]
  - HEPATIC ENZYME INCREASED [None]
  - HUNGER [None]
  - HYPOPHAGIA [None]
  - JAUNDICE [None]
  - JAUNDICE CHOLESTATIC [None]
  - PRURITUS [None]
  - SCAN ABDOMEN ABNORMAL [None]
  - ULTRASOUND ABDOMEN ABNORMAL [None]
  - WEIGHT DECREASED [None]
